FAERS Safety Report 4320189-2 (Version None)
Quarter: 2004Q1

REPORT INFORMATION
  Report Type: 
  Country: None (occurrence: None)
  Receive Date: 20040317
  Receipt Date: 20040310
  Transmission Date: 20041129
  Serious: Yes (Death, Hospitalization)
  Sender: FDA-Public Use
  Company Number: US-JNJFOC-20030902741

PATIENT
  Age: 39 Year
  Sex: Male

DRUGS (14)
  1. REMICADE [Suspect]
     Indication: RHEUMATOID ARTHRITIS
     Dosage: 6 MG/KG, 1 IN 1 DAY, INTRAVENOUS
     Route: 042
  2. METHOTREXATE [Concomitant]
  3. PREDNISONE [Concomitant]
  4. TYLENOL [Concomitant]
  5. ULTRACET (HYDROTALCITE) [Concomitant]
  6. DARVOCET (PROPACET) [Concomitant]
  7. TRAZADONE (TRAZADONE) [Concomitant]
  8. PROTONIX [Concomitant]
  9. VIOXX [Concomitant]
  10. FOLIC ACID [Concomitant]
  11. ZITHROMAX [Concomitant]
  12. ZOLOFT [Concomitant]
  13. ACCUPRIL [Concomitant]
  14. TYLENOL #3 (ACETAMINOPHEN/CODEINE) UNPSECIFIED [Concomitant]

REACTIONS (4)
  - BIOPSY LUNG ABNORMAL [None]
  - HISTOPLASMOSIS [None]
  - RENAL FAILURE [None]
  - RESPIRATORY FAILURE [None]
